FAERS Safety Report 15248025 (Version 2)
Quarter: 2018Q3

REPORT INFORMATION
  Report Type: Spontaneous
  Country: FR (occurrence: FR)
  Receive Date: 20180807
  Receipt Date: 20180912
  Transmission Date: 20181010
  Serious: Yes (Death, Hospitalization)
  Sender: FDA-Public Use
  Company Number: FR-BAUSCH-BL-2018-020897

PATIENT
  Age: 81 Year
  Sex: Female
  Weight: 49 kg

DRUGS (24)
  1. CLODRONATE DISODIUM [Concomitant]
     Active Substance: CLODRONATE DISODIUM
     Indication: SCOLIOSIS
     Dosage: 520 MG
     Route: 048
  2. REVLIMID [Suspect]
     Active Substance: LENALIDOMIDE
     Route: 048
     Dates: start: 20151217, end: 20160124
  3. ESOMEPRAZOLE MAGNESIUM. [Concomitant]
     Active Substance: ESOMEPRAZOLE MAGNESIUM
     Indication: PROPHYLAXIS OF NAUSEA AND VOMITING
     Route: 048
     Dates: start: 20151231
  4. AMOXICILLIN. [Concomitant]
     Active Substance: AMOXICILLIN
     Indication: ANTIBIOTIC PROPHYLAXIS
     Dosage: 1 GRAM
     Route: 065
     Dates: start: 20151119
  5. ZOPICLONE [Concomitant]
     Active Substance: ZOPICLONE
     Indication: INSOMNIA
     Route: 048
  6. HYDROXYZINE [Concomitant]
     Active Substance: HYDROXYZINE HYDROCHLORIDE
     Indication: ANXIETY
     Route: 065
     Dates: start: 20160107
  7. REVLIMID [Suspect]
     Active Substance: LENALIDOMIDE
     Route: 048
     Dates: start: 20151119, end: 20151231
  8. DEXAMETHASONE. [Suspect]
     Active Substance: DEXAMETHASONE
     Indication: PLASMA CELL MYELOMA
     Route: 048
     Dates: start: 20151119, end: 20160630
  9. REVLIMID [Suspect]
     Active Substance: LENALIDOMIDE
     Route: 048
     Dates: start: 20160609, end: 20160711
  10. LOPRAZOLAM MESILATE [Concomitant]
     Active Substance: LOPRAZOLAM MESILATE
     Indication: INSOMNIA
     Route: 048
     Dates: start: 20160801
  11. KARDEGIC [Concomitant]
     Active Substance: ASPIRIN DL-LYSINE
     Indication: VENTRICULAR TACHYCARDIA
     Route: 048
     Dates: start: 20151231
  12. DEXAMETHASONE. [Suspect]
     Active Substance: DEXAMETHASONE
     Route: 048
     Dates: start: 2016, end: 20160707
  13. FUROSEMIDE. [Concomitant]
     Active Substance: FUROSEMIDE
     Route: 048
     Dates: start: 20151201, end: 20160720
  14. PARACETAMOL [Concomitant]
     Active Substance: ACETAMINOPHEN
     Indication: BONE PAIN
     Route: 048
  15. ALPRAZOLAM. [Concomitant]
     Active Substance: ALPRAZOLAM
     Indication: PROPHYLAXIS
     Route: 048
     Dates: start: 20160801
  16. BRILIQUE [Concomitant]
     Active Substance: TICAGRELOR
     Indication: VENTRICULAR TACHYCARDIA
     Dosage: 90 MG
     Route: 048
     Dates: start: 20151231
  17. DARBEPOETIN ALFA [Concomitant]
     Active Substance: DARBEPOETIN ALFA
     Indication: ANAEMIA
     Route: 041
  18. DARBEPOETIN ALFA [Concomitant]
     Active Substance: DARBEPOETIN ALFA
     Dosage: 300 MICROGRAM, WEEKLY
     Route: 041
     Dates: start: 20160407
  19. FUROSEMIDE. [Concomitant]
     Active Substance: FUROSEMIDE
     Indication: OEDEMA PERIPHERAL
     Route: 048
     Dates: start: 20160722
  20. ATORVASTATIN CALCIUM. [Concomitant]
     Active Substance: ATORVASTATIN CALCIUM
     Indication: VENTRICULAR TACHYCARDIA
     Route: 048
     Dates: start: 20151231
  21. REVLIMID [Suspect]
     Active Substance: LENALIDOMIDE
     Indication: PLASMA CELL MYELOMA
     Route: 048
     Dates: start: 20160512
  22. FUROSEMIDE. [Concomitant]
     Active Substance: FUROSEMIDE
     Route: 058
     Dates: start: 20160722
  23. VALACICLOVIR [Concomitant]
     Active Substance: VALACYCLOVIR HYDROCHLORIDE
     Indication: ANTIVIRAL PROPHYLAXIS
     Dosage: 500 MG
     Route: 048
     Dates: start: 20151119
  24. BISOPROLOL FUMARATE. [Concomitant]
     Active Substance: BISOPROLOL FUMARATE
     Indication: VENTRICULAR TACHYCARDIA
     Route: 048
     Dates: start: 20151231

REACTIONS (6)
  - Ventricular tachycardia [Recovered/Resolved]
  - Oedema peripheral [Not Recovered/Not Resolved]
  - Diarrhoea [Recovered/Resolved]
  - Cardiac amyloidosis [Fatal]
  - Rash [Not Recovered/Not Resolved]
  - Tremor [Not Recovered/Not Resolved]

NARRATIVE: CASE EVENT DATE: 20160625
